FAERS Safety Report 21010388 (Version 1)
Quarter: 2022Q2

REPORT INFORMATION
  Report Type: Spontaneous
  Country: US (occurrence: None)
  Receive Date: 20220624
  Receipt Date: 20220624
  Transmission Date: 20220721
  Serious: No
  Sender: FDA-Public Use
  Company Number: None

PATIENT
  Sex: Female

DRUGS (1)
  1. OTEZLA [Suspect]
     Active Substance: APREMILAST
     Indication: Psoriasis
     Dosage: FREQUENCY : TWICE A DAY;?
     Route: 048
     Dates: end: 20220301

REACTIONS (7)
  - Diarrhoea [None]
  - Headache [None]
  - Fatigue [None]
  - Nausea [None]
  - Pruritus [None]
  - Angioedema [None]
  - Drug ineffective [None]
